FAERS Safety Report 8081022-9 (Version None)
Quarter: 2012Q1

REPORT INFORMATION
  Report Type: 
  Country: None (occurrence: None)
  Receive Date: 20120130
  Receipt Date: 20120124
  Transmission Date: 20120608
  Serious: Yes (Death, Hospitalization)
  Sender: FDA-Public Use
  Company Number: PHEH2012US000644

PATIENT
  Sex: Female
  Weight: 83.447 kg

DRUGS (10)
  1. CIPROFLOXACIN [Concomitant]
     Dosage: 500 MG, QD
  2. IBUPROFEN [Concomitant]
     Indication: PAIN
     Dosage: UNK
  3. GILENYA [Suspect]
     Indication: MULTIPLE SCLEROSIS
     Dosage: 0.5 MG, DAILY
     Route: 048
     Dates: start: 20110826
  4. MULTI-VITAMINS [Concomitant]
     Dosage: 1 DF, QD
  5. CIPROFLOXACIN [Concomitant]
     Dosage: 500 MG, BID
     Dates: start: 20111010
  6. PAXIL [Concomitant]
     Dosage: 20 MG, QD
     Route: 048
  7. KEPPRA [Concomitant]
     Dosage: 1 DF, BID
  8. CIPROFLOXACIN [Concomitant]
     Dosage: 0.5 DF, QD
  9. DITROPAN [Concomitant]
     Dosage: 0.5 DF, BID
     Dates: start: 20111010
  10. FERROUS GLUCONATE [Concomitant]
     Indication: IRON DEFICIENCY ANAEMIA
     Dosage: 1 DF, BID

REACTIONS (37)
  - CEREBRAL DISORDER [None]
  - MULTIPLE SCLEROSIS RELAPSE [None]
  - LEFT ATRIAL DILATATION [None]
  - CLUMSINESS [None]
  - MEAN CELL VOLUME ABNORMAL [None]
  - MONOCYTE COUNT INCREASED [None]
  - HYPERGLYCAEMIA [None]
  - CENTRAL VENOUS PRESSURE INCREASED [None]
  - WHITE BLOOD CELL COUNT DECREASED [None]
  - HEART RATE DECREASED [None]
  - CEREBRAL ATROPHY [None]
  - HEMIPLEGIA [None]
  - CARDIO-RESPIRATORY ARREST [None]
  - HEMIPARESIS [None]
  - GAIT DISTURBANCE [None]
  - VISUAL ACUITY REDUCED [None]
  - MICTURITION URGENCY [None]
  - ANAEMIA [None]
  - ASPIRATION [None]
  - CONVULSION [None]
  - DIASTOLIC DYSFUNCTION [None]
  - VENTRICULAR EXTRASYSTOLES [None]
  - LYMPHOCYTE COUNT DECREASED [None]
  - ESCHERICHIA URINARY TRACT INFECTION [None]
  - CEREBELLAR INFARCTION [None]
  - HAEMATOCRIT DECREASED [None]
  - MEAN CELL HAEMOGLOBIN DECREASED [None]
  - ASPARTATE AMINOTRANSFERASE INCREASED [None]
  - SUPRAVENTRICULAR EXTRASYSTOLES [None]
  - GRAND MAL CONVULSION [None]
  - APHASIA [None]
  - FATIGUE [None]
  - ATAXIA [None]
  - ALTERED STATE OF CONSCIOUSNESS [None]
  - TREMOR [None]
  - HYPOAESTHESIA [None]
  - ALANINE AMINOTRANSFERASE INCREASED [None]
